FAERS Safety Report 6265934-4 (Version None)
Quarter: 2009Q3

REPORT INFORMATION
  Report Type: 
  Country: None (occurrence: None)
  Receive Date: 20090709
  Receipt Date: 20090709
  Transmission Date: 20100115
  Serious: Yes (Life-Threatening, Hospitalization, Disabling)
  Sender: FDA-Public Use
  Company Number: None

PATIENT
  Age: 27 Year
  Sex: Female
  Weight: 61 kg

DRUGS (1)
  1. MIDRIN [Suspect]
     Indication: MIGRAINE
     Dosage: SHE TOOK ABOUT 5

REACTIONS (3)
  - DRUG EXPOSURE DURING PREGNANCY [None]
  - INCORRECT DOSE ADMINISTERED [None]
  - MYOCARDIAL INFARCTION [None]
